FAERS Safety Report 5787365-3 (Version None)
Quarter: 2008Q2

REPORT INFORMATION
  Report Type: 
  Country: None (occurrence: None)
  Receive Date: 20080625
  Receipt Date: 20080613
  Transmission Date: 20081010
  Serious: No
  Sender: FDA-Public Use
  Company Number: GB-PFIZER INC-2008011805

PATIENT
  Age: 45 Year
  Sex: Female

DRUGS (4)
  1. CHANTIX [Suspect]
     Indication: SMOKING CESSATION THERAPY
     Route: 048
     Dates: start: 20071023, end: 20071126
  2. SUMATRIPTAN SUCCINATE [Concomitant]
     Indication: MIGRAINE
     Route: 048
  3. VERAPAMIL [Concomitant]
     Route: 048
     Dates: start: 20070830, end: 20071126
  4. ANAESTHETICS [Concomitant]

REACTIONS (1)
  - NO ADVERSE EVENT [None]
